FAERS Safety Report 24531552 (Version 1)
Quarter: 2024Q4

REPORT INFORMATION
  Report Type: Spontaneous
  Country: FI (occurrence: FI)
  Receive Date: 20241022
  Receipt Date: 20241022
  Transmission Date: 20250115
  Serious: Yes (Disabling)
  Sender: CELLTRION
  Company Number: None

PATIENT

DRUGS (6)
  1. YUFLYMA [Suspect]
     Active Substance: ADALIMUMAB-AATY
     Indication: Rheumatic disorder
     Dosage: 40 MILLIGRAM, EVERY 2 WEEK (1 INJECTION SUBCUTANEOUSLY EVERY OTHER WEEK (2 INJECTIONS IN AUGUST, 2 I
     Dates: start: 202308, end: 202310
  2. LEVOTHYROXINE [Concomitant]
     Active Substance: LEVOTHYROXINE
     Indication: Hypothyroidism
     Dosage: 25 MICROGRAM, 1 PER DAY
     Route: 048
     Dates: start: 2000
  3. METOPROLOL TARTRATE [Concomitant]
     Active Substance: METOPROLOL TARTRATE
     Indication: Hypertension
     Dosage: 47.5 MILLIGRAM, 1 PER DAY
     Route: 048
     Dates: start: 2000
  4. EXFORGE HCT [Concomitant]
     Active Substance: AMLODIPINE BESYLATE\HYDROCHLOROTHIAZIDE\VALSARTAN
     Indication: Hypertension
     Dosage: 1 DF, 1 PER DAY
     Route: 048
     Dates: start: 2000
  5. ROSUVASTATIN [Concomitant]
     Active Substance: ROSUVASTATIN
     Indication: Blood cholesterol increased
     Dosage: 5 MG, EVERY 1 DAY (1/VRK 1 PER DAY)
     Route: 048
     Dates: start: 2000
  6. PREDNISOLONE [Concomitant]
     Active Substance: PREDNISOLONE
     Dosage: 5 MG, EVERY 1 DAY (1/VRK 1 PER DAY)
     Route: 048
     Dates: start: 20221011

REACTIONS (2)
  - Hypoacusis [Recovered/Resolved with Sequelae]
  - Tinnitus [Recovered/Resolved with Sequelae]

NARRATIVE: CASE EVENT DATE: 20231101
